FAERS Safety Report 25329550 (Version 1)
Quarter: 2025Q2

REPORT INFORMATION
  Report Type: Spontaneous
  Country: AT (occurrence: AT)
  Receive Date: 20250519
  Receipt Date: 20250519
  Transmission Date: 20250716
  Serious: Yes (Other)
  Sender: AMGEN
  Company Number: AT-AMGEN-AUTSP2025095732

PATIENT
  Age: 31 Year
  Sex: Male

DRUGS (1)
  1. XGEVA [Suspect]
     Active Substance: DENOSUMAB
     Indication: Bone giant cell tumour
     Dosage: 120 MILLIGRAM, Q4WK, WITH ADDITIONAL LOADING DOSES ON DAYS 8 AND 15
     Route: 058

REACTIONS (2)
  - Metastases to lung [Unknown]
  - Bone giant cell tumour [Unknown]
